FAERS Safety Report 23742397 (Version 1)
Quarter: 2024Q2

REPORT INFORMATION
  Report Type: Report from Study
  Country: ID (occurrence: None)
  Receive Date: 20240415
  Receipt Date: 20240415
  Transmission Date: 20240716
  Serious: Yes (Death, Hospitalization, Other)
  Sender: FDA-Public Use
  Company Number: 2019SE77898

PATIENT
  Sex: Female

DRUGS (1)
  1. TAGRISSO [Suspect]
     Active Substance: OSIMERTINIB
     Indication: Non-small cell lung cancer
     Route: 048
     Dates: start: 20190328, end: 20190724

REACTIONS (14)
  - Depressed level of consciousness [Fatal]
  - Blood pressure decreased [Fatal]
  - Body temperature increased [Fatal]
  - Chest pain [Fatal]
  - Malignant neoplasm progression [Fatal]
  - Chest discomfort [Fatal]
  - Cough [Fatal]
  - Dyspnoea [Fatal]
  - Condition aggravated [Fatal]
  - White blood cell count increased [Fatal]
  - Septic shock [Fatal]
  - Bone pain [Unknown]
  - Product use issue [Unknown]
  - Intentional dose omission [Unknown]
